FAERS Safety Report 8153475-9 (Version None)
Quarter: 2012Q1

REPORT INFORMATION
  Report Type: 
  Country: None (occurrence: None)
  Receive Date: 20120221
  Receipt Date: 20120214
  Transmission Date: 20120608
  Serious: Yes (Hospitalization)
  Sender: FDA-Public Use
  Company Number: CA-B.I. PHARMACEUTICALS,INC./RIDGEFIELD-2012-CN-00335CN

PATIENT
  Age: 85 Year
  Sex: Female
  Weight: 49 kg

DRUGS (9)
  1. ATORVASTATIN CALCIUM [Concomitant]
     Route: 048
  2. QUETIAPINE [Concomitant]
     Route: 048
  3. PRADAXA [Suspect]
     Dosage: 110 MG
     Route: 048
  4. SPIRONOLACTONE [Concomitant]
     Route: 048
  5. PRADAXA [Suspect]
     Dosage: 220 MG
     Route: 048
  6. NEXIUM [Concomitant]
     Route: 048
  7. FUROSEMIDE [Concomitant]
     Route: 048
  8. NITROGLYCERIN [Concomitant]
     Route: 062
  9. ENALAPRIL MALEATE [Concomitant]
     Route: 048

REACTIONS (3)
  - HAEMOGLOBIN DECREASED [None]
  - RECTAL HAEMORRHAGE [None]
  - MALAISE [None]
